FAERS Safety Report 4885727-X (Version None)
Quarter: 2006Q1

REPORT INFORMATION
  Report Type: 
  Country: None (occurrence: None)
  Receive Date: 20060117
  Receipt Date: 20060104
  Transmission Date: 20060701
  Serious: Yes (Other)
  Sender: FDA-Public Use
  Company Number: HQWYE177004JAN06

PATIENT
  Age: 32 Year
  Sex: Male

DRUGS (5)
  1. GEMTUZUMAB OZOGAMICIN (GEMTUZUMAB OZOGAMICIN, INJECTION) [Suspect]
     Indication: ACUTE LYMPHOCYTIC LEUKAEMIA
     Dosage: (DAYS 1-15), INTRAVENOUS
     Route: 042
     Dates: start: 20051212, end: 20051229
  2. CIPROFLOXACIN [Concomitant]
  3. ACYCLOVIR [Concomitant]
  4. ALLOPURINOL [Concomitant]
  5. URSODIOL (URSODEOXYCHOLIC ACID) [Concomitant]

REACTIONS (1)
  - SENSATION OF PRESSURE [None]
